FAERS Safety Report 7000949-X (Version None)
Quarter: 2010Q3

REPORT INFORMATION
  Report Type: 
  Country: None (occurrence: None)
  Receive Date: 20100920
  Receipt Date: 20100909
  Transmission Date: 20110219
  Serious: Yes (Other)
  Sender: FDA-Public Use
  Company Number: US-ASTRAZENECA-2010SE42586

PATIENT
  Sex: Male

DRUGS (4)
  1. SEROQUEL XR [Suspect]
     Route: 048
  2. EMBEDA [Concomitant]
  3. VICODIN [Concomitant]
  4. XANAX [Concomitant]

REACTIONS (2)
  - AGITATION [None]
  - HAND FRACTURE [None]
